FAERS Safety Report 6958657-7 (Version None)
Quarter: 2010Q3

REPORT INFORMATION
  Report Type: 
  Country: None (occurrence: None)
  Receive Date: 20100831
  Receipt Date: 20100819
  Transmission Date: 20110219
  Serious: No
  Sender: FDA-Public Use
  Company Number: CA-US-EMD SERONO, INC.-7015173

PATIENT
  Sex: Female

DRUGS (4)
  1. REBIF [Suspect]
     Indication: MULTIPLE SCLEROSIS
     Dates: start: 20001122
  2. GREENS AND CRANBERRY [Concomitant]
  3. SALMON OIL [Concomitant]
  4. CALCIUM AND MAGNESIUM [Concomitant]

REACTIONS (5)
  - ANXIETY [None]
  - FATIGUE [None]
  - FOOD POISONING [None]
  - HYPERTENSION [None]
  - MUSCLE SPASMS [None]
